FAERS Safety Report 7044507-X (Version None)
Quarter: 2010Q4

REPORT INFORMATION
  Report Type: 
  Country: None (occurrence: None)
  Receive Date: 20101014
  Receipt Date: 20101011
  Transmission Date: 20110411
  Serious: No
  Sender: FDA-Public Use
  Company Number: US-B.I. PHARMACEUTICALS,INC./RIDGEFIELD-2010-BP-11467BP

PATIENT
  Sex: Female

DRUGS (3)
  1. ZANTAC 75 [Suspect]
  2. RANITIDINE [Suspect]
     Dosage: 150 MG
  3. CARAFATE [Concomitant]
     Dosage: 1 MG

REACTIONS (1)
  - ABDOMINAL PAIN UPPER [None]
